FAERS Safety Report 11073326 (Version 3)
Quarter: 2015Q2

REPORT INFORMATION
  Report Type: Spontaneous
  Country: US (occurrence: US)
  Receive Date: 20150428
  Receipt Date: 20150527
  Transmission Date: 20150821
  Serious: No
  Sender: FDA-Public Use
  Company Number: US-VERTEX PHARMACEUTICALS-2015-001290

PATIENT
  Age: 2 Year
  Sex: Male

DRUGS (5)
  1. MULTIVITAMINS [Concomitant]
     Active Substance: VITAMINS
     Dosage: 9 MG/15 ML, LIQUID FORM
  2. KALYDECO [Suspect]
     Active Substance: IVACAFTOR
     Indication: CYSTIC FIBROSIS
     Dosage: 50MG PACKET MIXED WITH SOFT FOOD, BID
     Route: 048
     Dates: start: 20150415
  3. CREON [Concomitant]
     Active Substance: PANCRELIPASE AMYLASE\PANCRELIPASE LIPASE\PANCRELIPASE PROTEASE
     Dosage: 6000 UNK, UNK
     Route: 065
  4. ALBUTEROL SULFATE. [Concomitant]
     Active Substance: ALBUTEROL SULFATE
     Dosage: UNK
  5. PULMICORT TURBUHALER [Concomitant]
     Active Substance: BUDESONIDE
     Dosage: 0.025 MG PER 2 ML

REACTIONS (9)
  - Abnormal faeces [Not Recovered/Not Resolved]
  - Agitation [Recovered/Resolved]
  - Sleep disorder [Unknown]
  - Abdominal pain upper [Not Recovered/Not Resolved]
  - Restlessness [Recovered/Resolved]
  - Faeces discoloured [Not Recovered/Not Resolved]
  - Aggression [Recovered/Resolved]
  - Malaise [Recovered/Resolved]
  - Hypersensitivity [Unknown]

NARRATIVE: CASE EVENT DATE: 201504
